FAERS Safety Report 6372076-6 (Version None)
Quarter: 2009Q3

REPORT INFORMATION
  Report Type: 
  Country: None (occurrence: None)
  Receive Date: 20090918
  Receipt Date: 20090831
  Transmission Date: 20100115
  Serious: Yes (Hospitalization)
  Sender: FDA-Public Use
  Company Number: 6054128

PATIENT
  Age: 83 Year
  Sex: Female

DRUGS (10)
  1. LEVOTHYROX 125 [Suspect]
     Indication: HYPOTHYROIDISM
     Dosage: 1 DOSAGE FORMS (1 DOSAGE FORMS, 1 IN 1 D)
     Route: 048
  2. PREVISCAN                  (FLUINDIONE) [Suspect]
     Indication: ISCHAEMIC STROKE
     Dosage: 3/4 DOSAGE FORM DAY 1, 1/2 DOSAGE FORM DAY 2 (25 MG, 1 IN 2 D)
     Route: 048
     Dates: start: 20090327, end: 20090711
  3. AMOXICILLIN [Suspect]
     Indication: LUNG DISORDER
     Dosage: 3 DOSAGE FORMS (1 DOSAGE FORMS, 3 IN 1 D)
     Route: 048
     Dates: start: 20090701, end: 20090713
  4. PRAVASTATIN [Concomitant]
  5. ACARBOSE [Concomitant]
  6. OMEPRAZOLE [Concomitant]
  7. LORAZEPAM [Concomitant]
  8. LYRICA [Concomitant]
  9. NULYTELY [Concomitant]
  10. CACIT VITAMIN D3 (CALCIUM, CHOLECALCIFEROL) [Concomitant]

REACTIONS (3)
  - ACCIDENTAL OVERDOSE [None]
  - DRUG INTERACTION [None]
  - HAEMATURIA [None]
